FAERS Safety Report 24549797 (Version 3)
Quarter: 2024Q4

REPORT INFORMATION
  Report Type: Spontaneous
  Country: US (occurrence: US)
  Receive Date: 20241025
  Receipt Date: 20241210
  Transmission Date: 20250115
  Serious: Yes (Other)
  Sender: PHARMING GROUP
  Company Number: US-PHARMING-PHAUS2024000951

PATIENT

DRUGS (3)
  1. RUCONEST [Suspect]
     Active Substance: CONESTAT ALFA
     Indication: Hereditary angioedema
     Dosage: 3243 IU, PRN
     Route: 042
     Dates: start: 202405
  2. RUCONEST [Suspect]
     Active Substance: CONESTAT ALFA
     Dosage: 3243 IU, AS NEEDED
     Route: 042
     Dates: start: 202405
  3. HAEGARDA [Concomitant]
     Active Substance: HUMAN C1-ESTERASE INHIBITOR
     Indication: Product used for unknown indication

REACTIONS (4)
  - Pneumonia [Unknown]
  - Oral herpes [Unknown]
  - Illness [Unknown]
  - Underdose [Unknown]
